FAERS Safety Report 20149363 (Version 5)
Quarter: 2022Q4

REPORT INFORMATION
  Report Type: Spontaneous
  Country: CA (occurrence: None)
  Receive Date: 20211205
  Receipt Date: 20221017
  Transmission Date: 20230112
  Serious: Yes (Other)
  Sender: FDA-Public Use
  Company Number: CA-ROCHE-2971927

PATIENT
  Age: 65 Year
  Sex: Female
  Weight: 67 kg

DRUGS (8)
  1. AVASTIN [Suspect]
     Active Substance: BEVACIZUMAB
     Indication: Ovarian cancer
     Route: 042
  2. TERBUTALINE SULFATE [Suspect]
     Active Substance: TERBUTALINE SULFATE
     Indication: Dyspnoea
     Route: 065
  3. CELEBREX [Concomitant]
     Active Substance: CELECOXIB
     Indication: Back pain
  4. GABAPENTIN [Concomitant]
     Active Substance: GABAPENTIN
  5. PACLITAXEL [Concomitant]
     Active Substance: PACLITAXEL
     Indication: Ovarian cancer
     Route: 042
  6. ROSUVASTATIN CALCIUM [Concomitant]
     Active Substance: ROSUVASTATIN CALCIUM
     Route: 057
  7. SPIRIVA [Concomitant]
     Active Substance: TIOTROPIUM BROMIDE MONOHYDRATE
     Route: 065
  8. TYLENOL [Concomitant]
     Active Substance: ACETAMINOPHEN

REACTIONS (14)
  - Blood pressure diastolic abnormal [Recovered/Resolved]
  - Blood pressure increased [Recovered/Resolved]
  - Blood pressure systolic increased [Unknown]
  - Drug ineffective [Unknown]
  - Hypertension [Unknown]
  - Ligament sprain [Recovered/Resolved]
  - Pneumonia viral [Recovered/Resolved]
  - Oxygen saturation decreased [Recovered/Resolved]
  - Arthralgia [Recovered/Resolved]
  - Micturition urgency [Recovered/Resolved]
  - Nail discolouration [Recovered/Resolved]
  - Nail discomfort [Recovered/Resolved]
  - Onychalgia [Recovered/Resolved]
  - Urinary tract infection [Not Recovered/Not Resolved]
